FAERS Safety Report 16166840 (Version 4)
Quarter: 2019Q2

REPORT INFORMATION
  Report Type: Spontaneous
  Country: FR (occurrence: FR)
  Receive Date: 20190408
  Receipt Date: 20190528
  Transmission Date: 20190711
  Serious: Yes (Death, Hospitalization)
  Sender: FDA-Public Use
  Company Number: FR-CELLTRION INC.-2019FR020059

PATIENT

DRUGS (4)
  1. INFLIXIMAB (UNKNOWN) [Suspect]
     Active Substance: INFLIXIMAB
     Indication: HERMANSKY-PUDLAK SYNDROME
     Dosage: 5 MG/KG, UNK
     Route: 041
  2. METHYLPREDNISOLONE. [Concomitant]
     Active Substance: METHYLPREDNISOLONE
     Indication: COLITIS
     Dosage: 60 MG, QD
     Route: 042
  3. INFLIXIMAB (UNKNOWN) [Suspect]
     Active Substance: INFLIXIMAB
     Indication: COLITIS
     Dosage: 5 MG/KG
     Route: 042
  4. AZATHIOPRINE. [Suspect]
     Active Substance: AZATHIOPRINE
     Indication: HERMANSKY-PUDLAK SYNDROME
     Dosage: 50 MG, QD (DOSAGE FORM UNSPECIFIED)
     Route: 065

REACTIONS (7)
  - Anaphylactic reaction [Unknown]
  - Respiratory failure [Fatal]
  - Pulmonary fibrosis [Unknown]
  - Product use in unapproved indication [Unknown]
  - Malnutrition [Unknown]
  - Bronchospasm [Unknown]
  - Off label use [Unknown]
